FAERS Safety Report 8779391 (Version 1)
Quarter: 2012Q4

REPORT INFORMATION
  Report Type: 
  Country: IT (occurrence: IT)
  Receive Date: 20120912
  Receipt Date: 20120912
  Transmission Date: 20130627
  Serious: Yes (Hospitalization)
  Sender: FDA-Public Use
  Company Number: IT-MYLANLABS-2012S1018307

PATIENT
  Sex: Female

DRUGS (5)
  1. SALBUTAMOL [Suspect]
     Indication: ASTHMA
     Dosage: 6 mg/day
     Route: 065
  2. SALBUTAMOL [Suspect]
     Indication: BRONCHITIS
     Dosage: 6 mg/day
     Route: 065
  3. SALBUTAMOL [Suspect]
     Indication: ASTHMA
     Dosage: 6 mg/day
     Route: 055
  4. SALBUTAMOL [Suspect]
     Indication: BRONCHITIS
     Dosage: 6 mg/day
     Route: 055
  5. BECLOMETHASONE [Suspect]
     Route: 065

REACTIONS (1)
  - Cystitis haemorrhagic [Recovered/Resolved]
